FAERS Safety Report 7611238-4 (Version None)
Quarter: 2011Q3

REPORT INFORMATION
  Report Type: 
  Country: None (occurrence: None)
  Receive Date: 20110715
  Receipt Date: 20110707
  Transmission Date: 20111222
  Serious: Yes (Other)
  Sender: FDA-Public Use
  Company Number: US-TEVA-289727USA

PATIENT
  Sex: Female
  Weight: 47.216 kg

DRUGS (1)
  1. COPAXONE [Suspect]
     Indication: MULTIPLE SCLEROSIS
     Dosage: 20 MILLIGRAM;
     Route: 058
     Dates: start: 20100301

REACTIONS (4)
  - FLUSHING [None]
  - THROAT TIGHTNESS [None]
  - INJECTION SITE PRURITUS [None]
  - SWELLING [None]
